FAERS Safety Report 16741794 (Version 2)
Quarter: 2019Q3

REPORT INFORMATION
  Report Type: Spontaneous
  Country: JP (occurrence: JP)
  Receive Date: 20190826
  Receipt Date: 20190916
  Transmission Date: 20191005
  Serious: Yes (Life-Threatening, Other)
  Sender: FDA-Public Use
  Company Number: JP-ASTELLAS-2019JP017302

PATIENT
  Age: 8 Decade
  Sex: Female

DRUGS (1)
  1. XOSPATA [Suspect]
     Active Substance: GILTERITINIB
     Indication: ACUTE MYELOID LEUKAEMIA
     Route: 048
     Dates: start: 20190729

REACTIONS (4)
  - Metastases to central nervous system [Unknown]
  - Hepatic function abnormal [Not Recovered/Not Resolved]
  - Blast cell count increased [Unknown]
  - Oxygen saturation decreased [Not Recovered/Not Resolved]
